FAERS Safety Report 4294635-7 (Version None)
Quarter: 2004Q1

REPORT INFORMATION
  Report Type: 
  Country: None (occurrence: None)
  Receive Date: 20040211
  Receipt Date: 20040128
  Transmission Date: 20041129
  Serious: Yes (Death, Other)
  Sender: FDA-Public Use
  Company Number: USA031254951

PATIENT
  Age: 34 Year
  Sex: Male
  Weight: 241 kg

DRUGS (3)
  1. XIGRIS [Suspect]
     Indication: SEPSIS
     Dosage: 24 UG/KG/HR
     Dates: start: 20031130, end: 20031204
  2. DOPAMINE HCL [Concomitant]
  3. NOREPINEPHRINE [Concomitant]

REACTIONS (7)
  - BRADYCARDIA [None]
  - DISSEMINATED INTRAVASCULAR COAGULATION [None]
  - EPISTAXIS [None]
  - HYPOTENSION [None]
  - PLATELET COUNT DECREASED [None]
  - PULSE ABSENT [None]
  - UPPER GASTROINTESTINAL HAEMORRHAGE [None]
